FAERS Safety Report 8001951-1 (Version None)
Quarter: 2011Q4

REPORT INFORMATION
  Report Type: 
  Country: None (occurrence: None)
  Receive Date: 20111222
  Receipt Date: 20111220
  Transmission Date: 20120403
  Serious: Yes (Hospitalization, Other)
  Sender: FDA-Public Use
  Company Number: US-ROCHE-784658

PATIENT
  Sex: Male
  Weight: 68.1 kg

DRUGS (2)
  1. ACCUTANE [Suspect]
     Indication: ACNE
     Route: 065
     Dates: start: 19820101, end: 19830101
  2. ANTIBIOTIC NOS [Concomitant]
     Indication: PRODUCT USED FOR UNKNOWN INDICATION

REACTIONS (11)
  - INFLAMMATORY BOWEL DISEASE [None]
  - FISTULA [None]
  - CROHN'S DISEASE [None]
  - ABDOMINAL ABSCESS [None]
  - COLONIC POLYP [None]
  - GASTRIC ULCER [None]
  - INTESTINAL OBSTRUCTION [None]
  - EMOTIONAL DISTRESS [None]
  - ABDOMINAL STRANGULATED HERNIA [None]
  - COLITIS ULCERATIVE [None]
  - COLONIC STENOSIS [None]
